FAERS Safety Report 4695232-1 (Version None)
Quarter: 2005Q2

REPORT INFORMATION
  Report Type: 
  Country: None (occurrence: None)
  Receive Date: 20050614
  Receipt Date: 20050125
  Transmission Date: 20051028
  Serious: No
  Sender: FDA-Public Use
  Company Number: USA041284968

PATIENT
  Age: 81 Year
  Sex: Male

DRUGS (8)
  1. CIALIS [Suspect]
     Indication: ERECTILE DYSFUNCTION
     Dosage: 20 MG/L DAY
     Dates: start: 20040901, end: 20040918
  2. ZOCOR (SIMVASTATIN RATIOPHARM) [Concomitant]
  3. LISINOPRIL [Concomitant]
  4. LEVOTHYROXINE GLUCOPHAGTE (METFORMIN) [Concomitant]
  5. ASPIRIN [Concomitant]
  6. MULTI-VITAMIN [Concomitant]
  7. SELENIUM SULFIDE [Concomitant]
  8. VITAMIN E [Concomitant]

REACTIONS (1)
  - ABNORMAL SENSATION IN EYE [None]
